FAERS Safety Report 8056394-1 (Version None)
Quarter: 2012Q1

REPORT INFORMATION
  Report Type: 
  Country: None (occurrence: None)
  Receive Date: 20120119
  Receipt Date: 20110401
  Transmission Date: 20120608
  Serious: Yes (Hospitalization)
  Sender: FDA-Public Use
  Company Number: US-SANOFI-AVENTIS-2011SA016900

PATIENT
  Age: 84 Year
  Sex: Male

DRUGS (20)
  1. VICODIN [Concomitant]
  2. COREG [Concomitant]
  3. NEURONTIN [Concomitant]
  4. UNASYN [Concomitant]
  5. LASIX [Suspect]
     Route: 065
  6. INVESTIGATIONAL DRUG [Concomitant]
     Indication: THROMBOSIS PROPHYLAXIS
     Route: 048
     Dates: start: 20100118, end: 20100121
  7. LISINOPRIL [Concomitant]
  8. GENTAMICIN [Concomitant]
  9. PERCOCET [Concomitant]
  10. LOVENOX [Concomitant]
  11. LEVETIRACETAM [Concomitant]
  12. MEGACE [Concomitant]
  13. AMBIEN [Concomitant]
  14. KEPPRA [Concomitant]
  15. ARMODAFINIL [Concomitant]
  16. ZOSYN [Concomitant]
  17. AMPICILLIN [Concomitant]
  18. WARFARIN SODIUM [Concomitant]
     Indication: THROMBOSIS PROPHYLAXIS
     Route: 048
     Dates: start: 20100118, end: 20100121
  19. PLACEBO [Concomitant]
     Route: 048
     Dates: start: 20100118, end: 20100121
  20. PRAVASTATIN [Concomitant]

REACTIONS (1)
  - HYPOKALAEMIA [None]
